FAERS Safety Report 7370075-9 (Version None)
Quarter: 2011Q1

REPORT INFORMATION
  Report Type: 
  Country: None (occurrence: None)
  Receive Date: 20110323
  Receipt Date: 20110310
  Transmission Date: 20110831
  Serious: Yes (Other)
  Sender: FDA-Public Use
  Company Number: PHHY2010JP58242

PATIENT
  Sex: Female
  Weight: 53 kg

DRUGS (6)
  1. LIVALO KOWA [Concomitant]
     Indication: DYSLIPIDAEMIA
     Dosage: 1 MG
     Route: 048
     Dates: start: 20100122
  2. ALISKIREN [Suspect]
     Indication: HYPERTENSION
     Dosage: 150 MG, QD
     Route: 048
     Dates: start: 20100122
  3. ALISKIREN [Suspect]
     Dosage: UNK
     Route: 048
     Dates: start: 20100209
  4. AMLODIPINE [Concomitant]
     Indication: HYPERTENSION
     Dosage: 5 MG
     Route: 048
     Dates: start: 20100122
  5. ADALAT CC [Concomitant]
     Dosage: 20 MG
     Route: 048
  6. ADALAT CC [Concomitant]
     Indication: HYPERTENSION
     Dosage: 60 MG, UNK
     Route: 048
     Dates: start: 20100416

REACTIONS (2)
  - RENAL IMPAIRMENT [None]
  - HYPERURICAEMIA [None]
